FAERS Safety Report 6282170-6 (Version None)
Quarter: 2009Q3

REPORT INFORMATION
  Report Type: 
  Country: None (occurrence: None)
  Receive Date: 20090721
  Receipt Date: 20090721
  Transmission Date: 20100115
  Serious: Yes (Hospitalization)
  Sender: FDA-Public Use
  Company Number: None

PATIENT
  Age: 76 Year
  Sex: Male
  Weight: 99 kg

DRUGS (2)
  1. COUMADIN [Suspect]
     Indication: CEREBROVASCULAR ACCIDENT
     Dosage: 7.5 MG DAILY PO
     Route: 048
  2. ALEVE [Suspect]
     Indication: PAIN IN EXTREMITY
     Dosage: 200 MG DQ12H-PRN PO
     Route: 048

REACTIONS (3)
  - ABDOMINAL DISTENSION [None]
  - NAUSEA [None]
  - OESOPHAGEAL ULCER HAEMORRHAGE [None]
